FAERS Safety Report 7347896-1 (Version None)
Quarter: 2011Q1

REPORT INFORMATION
  Report Type: 
  Country: None (occurrence: None)
  Receive Date: 20110311
  Receipt Date: 20110302
  Transmission Date: 20110831
  Serious: Yes (Other)
  Sender: FDA-Public Use
  Company Number: FR-ASTRAZENECA-2011SE12089

PATIENT
  Age: 79 Year
  Sex: Female

DRUGS (2)
  1. SYMBICORT [Suspect]
     Indication: ASTHMA
     Dosage: 160/4.5 UG PER DOSE, ONE INHALATION TWICE PER DAY
     Route: 055
  2. VENTOLIN [Concomitant]
     Indication: ASTHMA

REACTIONS (2)
  - OROPHARYNGEAL CANDIDIASIS [None]
  - ARRHYTHMIA [None]
